FAERS Safety Report 20699013 (Version 1)
Quarter: 2022Q2

REPORT INFORMATION
  Report Type: Spontaneous
  Country: TR (occurrence: TR)
  Receive Date: 20220412
  Receipt Date: 20220412
  Transmission Date: 20220721
  Serious: Yes (Hospitalization, Other)
  Sender: FDA-Public Use
  Company Number: TR-MACLEODS PHARMACEUTICALS US LTD-MAC2022035128

PATIENT

DRUGS (6)
  1. PRAMIPEXOLE [Interacting]
     Active Substance: PRAMIPEXOLE
     Indication: Parkinson^s disease
     Dosage: 1.5 MILLIGRAM, QD
     Route: 065
  2. PRAMIPEXOLE [Interacting]
     Active Substance: PRAMIPEXOLE
     Dosage: 3 MILLIGRAM, QD, INCREASED TO
     Route: 065
  3. SILDENAFIL [Interacting]
     Active Substance: SILDENAFIL
     Indication: Erectile dysfunction
     Dosage: 50 MILLIGRAM, QD
     Route: 065
  4. ASIAN GINSENG [Interacting]
     Active Substance: ASIAN GINSENG
     Indication: Erectile dysfunction
     Dosage: UNK UNK, BID
     Route: 065
  5. RASAGILINE MESYLATE [Concomitant]
     Active Substance: RASAGILINE MESYLATE
     Indication: Parkinson^s disease
     Dosage: 1 MILLIGRAM, QD
     Route: 065
  6. Amantadin sulfate [Concomitant]
     Indication: Parkinson^s disease
     Dosage: 200 MILLIGRAM, QD
     Route: 065

REACTIONS (7)
  - Manic symptom [Unknown]
  - Aggression [Unknown]
  - Jealous delusion [Unknown]
  - Sense of oppression [Unknown]
  - Mania [Unknown]
  - Paranoia [Unknown]
  - Drug interaction [Unknown]
